FAERS Safety Report 23047466 (Version 2)
Quarter: 2024Q1

REPORT INFORMATION
  Report Type: Spontaneous
  Country: US (occurrence: US)
  Receive Date: 20231010
  Receipt Date: 20240128
  Transmission Date: 20240409
  Serious: Yes (Hospitalization, Other)
  Sender: FDA-Public Use
  Company Number: US-PCCINC-2023-PPL-000422

PATIENT

DRUGS (1)
  1. GABLOFEN [Suspect]
     Active Substance: BACLOFEN
     Indication: Muscle spasticity
     Dosage: 963.1 MICROGRAM/DAY
     Route: 037

REACTIONS (3)
  - Underdose [Unknown]
  - Musculoskeletal stiffness [Unknown]
  - Withdrawal syndrome [Unknown]
